FAERS Safety Report 5794682-X (Version None)
Quarter: 2008Q2

REPORT INFORMATION
  Report Type: 
  Country: None (occurrence: None)
  Receive Date: 20080630
  Receipt Date: 20080618
  Transmission Date: 20081010
  Serious: Yes (Other)
  Sender: FDA-Public Use
  Company Number: MA-MERCK-0806USA07702

PATIENT
  Age: 36 Year
  Sex: Male

DRUGS (3)
  1. CRIXIVAN [Suspect]
     Indication: HIV INFECTION
     Route: 065
     Dates: start: 20031001
  2. ZIDOVUDINE [Concomitant]
     Indication: HIV INFECTION
     Route: 065
     Dates: start: 20031001
  3. DIDANOSINE [Concomitant]
     Indication: HIV INFECTION
     Route: 065
     Dates: start: 20031001

REACTIONS (1)
  - OSTEONECROSIS [None]
